FAERS Safety Report 21308417 (Version 2)
Quarter: 2022Q3

REPORT INFORMATION
  Report Type: Spontaneous
  Country: NL (occurrence: NL)
  Receive Date: 20220908
  Receipt Date: 20220921
  Transmission Date: 20221026
  Serious: Yes (Hospitalization, Other)
  Sender: FDA-Public Use
  Company Number: NL-TEVA-2022-NL-2070152

PATIENT
  Sex: Male

DRUGS (9)
  1. LEVETIRACETAM [Suspect]
     Active Substance: LEVETIRACETAM
     Indication: Epileptic encephalopathy
     Route: 065
  2. PHENOBARBITAL [Suspect]
     Active Substance: PHENOBARBITAL
     Indication: Epileptic encephalopathy
     Route: 065
  3. PYRIDOXINE [Suspect]
     Active Substance: PYRIDOXINE
     Indication: Epileptic encephalopathy
     Dosage: 15 MG/KG DAILY;
     Route: 042
  4. PYRIDOXINE [Suspect]
     Active Substance: PYRIDOXINE
     Indication: Epileptic encephalopathy
     Dosage: 30 MG/KG DAILY;
     Route: 042
  5. MIDAZOLAM [Suspect]
     Active Substance: MIDAZOLAM
     Indication: Epileptic encephalopathy
     Route: 042
  6. PHENYTOIN [Suspect]
     Active Substance: PHENYTOIN
     Indication: Epileptic encephalopathy
     Route: 065
  7. PYRIDOXAL PHOSPHATE ANHYDROUS [Suspect]
     Active Substance: PYRIDOXAL PHOSPHATE ANHYDROUS
     Indication: Epileptic encephalopathy
     Dosage: THROUGH NASOGASTRIC TUBE. THIS SUPPLEMENT WAS LABELLED AS CONTAINING 35,1 MG PYRIDOXAL-PHOSPHATE,...
     Route: 045
  8. PYRIDOXAL PHOSPHATE ANHYDROUS [Suspect]
     Active Substance: PYRIDOXAL PHOSPHATE ANHYDROUS
     Dosage: (74 MG/KG/D) EXCEEDED THE INTENDED DOSAGE (50 MG/KG/D)
     Route: 045
  9. PYRIDOXAL PHOSPHATE ANHYDROUS [Suspect]
     Active Substance: PYRIDOXAL PHOSPHATE ANHYDROUS
     Dosage: 31 MG/KG DAILY; ADDITIONAL INFO: MEDICATION ERROR
     Route: 045

REACTIONS (5)
  - Drug ineffective [Unknown]
  - Hepatotoxicity [Recovered/Resolved]
  - Respiratory failure [Unknown]
  - Toxicity to various agents [Unknown]
  - Product label confusion [Unknown]
